FAERS Safety Report 17482783 (Version 1)
Quarter: 2020Q1

REPORT INFORMATION
  Report Type: Spontaneous
  Country: KR (occurrence: KR)
  Receive Date: 20200302
  Receipt Date: 20200302
  Transmission Date: 20200409
  Serious: Yes (Other)
  Sender: FDA-Public Use
  Company Number: KR-GLAXOSMITHKLINE-KR2020APC030463

PATIENT
  Sex: Male

DRUGS (7)
  1. BUDESONIDE. [Suspect]
     Active Substance: BUDESONIDE
     Dosage: UNK
     Dates: start: 20120225
  2. HIB VACCINE [Suspect]
     Active Substance: HAEMOPHILUS INFLUENZAE TYPE B
     Indication: PROPHYLAXIS
     Dates: start: 20120221
  3. SALBUTAMOL [Suspect]
     Active Substance: ALBUTEROL
     Dosage: UNK
     Dates: start: 20120225
  4. PHENYLEPRINE [Suspect]
     Active Substance: PHENYLEPHRINE HYDROCHLORIDE
  5. PNEUMOCOCCAL POLYSACCHARIDE CONJUGATE VACCINE [Suspect]
     Active Substance: PNEUMOCOCCAL VACCINE POLYVALENT
     Indication: PROPHYLAXIS
     Dates: start: 20120221
  6. RESPIRATORY MEDICATION UNKNOWN [Suspect]
     Active Substance: UNSPECIFIED INGREDIENT
     Dosage: UNK
     Dates: start: 20120225
  7. ROTAVIRUS VACCINE [Suspect]
     Active Substance: HUMAN ROTAVIRUS A
     Indication: PROPHYLAXIS
     Dates: start: 20120221

REACTIONS (4)
  - Irritability [Recovered/Resolved]
  - Bronchiolitis [Recovered/Resolved]
  - Injection site pain [Recovered/Resolved]
  - Crying [Recovered/Resolved]

NARRATIVE: CASE EVENT DATE: 20120221
